FAERS Safety Report 8925994 (Version 3)
Quarter: 2013Q2

REPORT INFORMATION
  Report Type: Spontaneous
  Country: US (occurrence: US)
  Receive Date: 20121126
  Receipt Date: 20130528
  Transmission Date: 20140414
  Serious: Yes (Hospitalization, Other)
  Sender: FDA-Public Use
  Company Number: US-GILEAD-2012-0064890

PATIENT
  Age: 47 Year
  Sex: Female

DRUGS (4)
  1. LETAIRIS [Suspect]
     Indication: PULMONARY HYPERTENSION
     Dosage: 10 MG, UNK
     Route: 048
     Dates: start: 20090818, end: 20121002
  2. LETAIRIS [Suspect]
     Indication: SCLERODERMA
  3. LETAIRIS [Suspect]
     Indication: CONNECTIVE TISSUE DISORDER
  4. LETAIRIS [Suspect]
     Indication: ALCOHOL ABUSE

REACTIONS (2)
  - Alcohol poisoning [Not Recovered/Not Resolved]
  - Liver function test abnormal [Not Recovered/Not Resolved]
